FAERS Safety Report 11965401 (Version 1)
Quarter: 2016Q1

REPORT INFORMATION
  Report Type: Spontaneous
  Country: US (occurrence: None)
  Receive Date: 20160125
  Receipt Date: 20160125
  Transmission Date: 20160526
  Serious: No
  Sender: FDA-Public Use
  Company Number: None

PATIENT
  Age: 7 Year
  Sex: Male
  Weight: 23.59 kg

DRUGS (1)
  1. TAMIFLU [Suspect]
     Active Substance: OSELTAMIVIR PHOSPHATE
     Indication: INFLUENZA
     Route: 048
     Dates: start: 20160122, end: 20160122

REACTIONS (4)
  - Unresponsive to stimuli [None]
  - Speech disorder [None]
  - Disorientation [None]
  - Staring [None]

NARRATIVE: CASE EVENT DATE: 20160122
